FAERS Safety Report 6521337-6 (Version None)
Quarter: 2009Q4

REPORT INFORMATION
  Report Type: 
  Country: None (occurrence: None)
  Receive Date: 20091230
  Receipt Date: 20091222
  Transmission Date: 20100525
  Serious: Yes (Hospitalization, Other)
  Sender: FDA-Public Use
  Company Number: PT-JNJFOC-20090700067

PATIENT
  Age: 7 Decade
  Sex: Female

DRUGS (8)
  1. CAELYX [Suspect]
     Indication: BREAST CANCER METASTATIC
     Dosage: CYCLE 1
     Route: 042
  2. CAELYX [Suspect]
     Dosage: CYCLE 3
     Route: 042
  3. CAELYX [Suspect]
     Dosage: CYCLE 2
     Route: 042
  4. CYCLOPHOSPHAMIDE [Suspect]
     Indication: BREAST CANCER METASTATIC
     Route: 065
  5. CARVEDILOL [Concomitant]
     Indication: CARDIAC FAILURE
     Route: 065
  6. TROMALYT [Concomitant]
     Indication: CARDIAC FAILURE
     Route: 065
  7. CLEMASTINE FUMARATE [Concomitant]
     Indication: PREMEDICATION
     Route: 065
  8. PREDNISONE [Concomitant]
     Indication: PREMEDICATION
     Route: 065

REACTIONS (7)
  - ANGIOEDEMA [None]
  - CARDIOVASCULAR DISORDER [None]
  - CHEST PAIN [None]
  - DYSPNOEA [None]
  - HYPERSENSITIVITY [None]
  - PALPITATIONS [None]
  - PARAESTHESIA [None]
